FAERS Safety Report 25454387 (Version 1)
Quarter: 2025Q2

REPORT INFORMATION
  Report Type: Spontaneous
  Country: FR (occurrence: FR)
  Receive Date: 20250619
  Receipt Date: 20250619
  Transmission Date: 20250716
  Serious: Yes (Death, Other)
  Sender: BIOVITRUM
  Company Number: FR-BIOVITRUM-2025-FR-008599

PATIENT

DRUGS (1)
  1. VONJO [Suspect]
     Active Substance: PACRITINIB
     Indication: Product used for unknown indication
     Dates: end: 20250604

REACTIONS (1)
  - Death [Fatal]

NARRATIVE: CASE EVENT DATE: 20250605
